FAERS Safety Report 5625044-3 (Version None)
Quarter: 2008Q1

REPORT INFORMATION
  Report Type: 
  Country: None (occurrence: None)
  Receive Date: 20080213
  Receipt Date: 20080201
  Transmission Date: 20080703
  Serious: Yes (Other)
  Sender: FDA-Public Use
  Company Number: US-PFIZER INC-2008010578

PATIENT
  Sex: Female

DRUGS (2)
  1. LYRICA [Suspect]
     Route: 048
  2. LORTAB [Concomitant]

REACTIONS (5)
  - DYSSTASIA [None]
  - HYPOAESTHESIA [None]
  - NAUSEA [None]
  - SOMNOLENCE [None]
  - VISUAL ACUITY REDUCED [None]
